FAERS Safety Report 16776200 (Version 1)
Quarter: 2019Q3

REPORT INFORMATION
  Report Type: Spontaneous
  Country: DK (occurrence: DK)
  Receive Date: 20190905
  Receipt Date: 20190905
  Transmission Date: 20191005
  Serious: Yes (Other)
  Sender: FDA-Public Use
  Company Number: DK-009507513-1909DNK001271

PATIENT
  Age: 0 Day

DRUGS (2)
  1. THYCAPZOL [Concomitant]
     Active Substance: METHIMAZOLE
     Dosage: DOSE: VARYING DOSES. STRENGTH: 5 MG
     Route: 064
     Dates: start: 20180801, end: 20190114
  2. NEXPLANON [Suspect]
     Active Substance: ETONOGESTREL
     Dosage: 1 DOSAGE FORM, STRENGTH: 68 MG
     Route: 064
     Dates: start: 20180822

REACTIONS (4)
  - Adverse reaction [Unknown]
  - Foetal disorder [Unknown]
  - Foetal exposure during pregnancy [Recovered/Resolved]
  - Foetal monitoring abnormal [Unknown]

NARRATIVE: CASE EVENT DATE: 20190511
